FAERS Safety Report 24270823 (Version 3)
Quarter: 2024Q3

REPORT INFORMATION
  Report Type: Spontaneous
  Country: US (occurrence: US)
  Receive Date: 20240831
  Receipt Date: 20240910
  Transmission Date: 20241017
  Serious: Yes (Death)
  Sender: ROCHE
  Company Number: US-ROCHE-10000070337

PATIENT
  Age: 66 Year
  Sex: Female

DRUGS (2)
  1. CELLCEPT [Suspect]
     Active Substance: MYCOPHENOLATE MOFETIL
     Indication: Product used for unknown indication
     Dosage: LAST DOSE REPORTED TO BE EITHER 01-AUG-2024 OR 02-AUG-2024
     Route: 048
  2. OFEV [Concomitant]
     Active Substance: NINTEDANIB
     Dosage: LAST DOSE REPORTED TO BE EITHER 01-AUG-2024 OR 02-AUG-2024
     Dates: end: 202408

REACTIONS (1)
  - Death [Fatal]

NARRATIVE: CASE EVENT DATE: 20240804
